FAERS Safety Report 5158253-0 (Version None)
Quarter: 2006Q4

REPORT INFORMATION
  Report Type: 
  Country: None (occurrence: None)
  Receive Date: 20061128
  Receipt Date: 20061108
  Transmission Date: 20070319
  Serious: Yes (Other)
  Sender: FDA-Public Use
  Company Number: PHBS2006JP17476

PATIENT
  Age: 36 Year
  Sex: Female

DRUGS (3)
  1. AREDIA [Suspect]
     Indication: METASTASES TO BONE
     Dosage: 45 MG, UNK
     Route: 042
     Dates: start: 20050801, end: 20060501
  2. TAXOTERE [Concomitant]
     Dosage: EVERY 1 TO 2 WEEKS
     Route: 065
     Dates: start: 20050801, end: 20060501
  3. INCARDONATE [Concomitant]
     Dosage: 10 MG, EVERY 2 - 4 WEEKS
     Dates: start: 20040101, end: 20050201

REACTIONS (13)
  - BONE DISORDER [None]
  - BONE PAIN [None]
  - ERYTHEMA [None]
  - LYMPH NODE PAIN [None]
  - LYMPHADENOPATHY [None]
  - MOUTH ULCERATION [None]
  - OSTEONECROSIS [None]
  - PAIN IN JAW [None]
  - PYREXIA [None]
  - SWELLING [None]
  - TOOTH IMPACTED [None]
  - TRISMUS [None]
  - WOUND SECRETION [None]
